FAERS Safety Report 14095978 (Version 1)
Quarter: 2017Q4

REPORT INFORMATION
  Report Type: Spontaneous
  Country: None (occurrence: US)
  Receive Date: 20171016
  Receipt Date: 20171016
  Transmission Date: 20180321
  Serious: No
  Sender: FDA-Public Use
  Company Number: US-MATRIXX INITIATIVES, INC.-2030246

PATIENT
  Sex: Male

DRUGS (1)
  1. ZICAM COLD REMEDY NASAL SWABS (HOMEOPATHICS) [Suspect]
     Active Substance: HOMEOPATHICS\ZINC ACETATE\ZINC GLUCONATE
     Indication: HYPERSENSITIVITY
     Route: 045

REACTIONS (1)
  - Anosmia [Not Recovered/Not Resolved]
